FAERS Safety Report 16070588 (Version 1)
Quarter: 2019Q1

REPORT INFORMATION
  Report Type: Spontaneous
  Country: DE (occurrence: DE)
  Receive Date: 20190314
  Receipt Date: 20190314
  Transmission Date: 20190418
  Serious: Yes (Other)
  Sender: FDA-Public Use
  Company Number: DE-BAUSCH-BL-2019-007509

PATIENT
  Age: 7 Year

DRUGS (2)
  1. ATROPINE. [Suspect]
     Active Substance: ATROPINE
     Indication: EYE INJURY
     Route: 065
  2. MONODEX [Suspect]
     Active Substance: DEXAMETHASONE
     Indication: EYE INJURY
     Route: 047

REACTIONS (2)
  - Product administered to patient of inappropriate age [Unknown]
  - Intraocular pressure increased [Unknown]
